FAERS Safety Report 5110492-0 (Version None)
Quarter: 2006Q3

REPORT INFORMATION
  Report Type: 
  Country: None (occurrence: None)
  Receive Date: 20060918
  Receipt Date: 20060905
  Transmission Date: 20061208
  Serious: Yes (Hospitalization)
  Sender: FDA-Public Use
  Company Number: HQWYE414107SEP06

PATIENT
  Age: 62 Year
  Sex: Male

DRUGS (3)
  1. EFFEXOR [Suspect]
     Indication: DEPRESSION
     Dates: start: 20040101
  2. MIRTAZAPINE [Suspect]
     Indication: DEPRESSION
     Dates: start: 20040101
  3. SERTRALINE [Suspect]
     Indication: DEPRESSION
     Dates: start: 20040101

REACTIONS (5)
  - DEPRESSION [None]
  - DRUG INEFFECTIVE [None]
  - PARKINSON'S DISEASE [None]
  - PSYCHOTIC DISORDER [None]
  - THERAPY NON-RESPONDER [None]
